FAERS Safety Report 9198516 (Version 3)
Quarter: 2013Q2

REPORT INFORMATION
  Report Type: Spontaneous
  Country: BR (occurrence: BR)
  Receive Date: 20130329
  Receipt Date: 20130530
  Transmission Date: 20140414
  Serious: Yes (Other)
  Sender: FDA-Public Use
  Company Number: PHHY2013BR026442

PATIENT
  Age: 67 Year
  Sex: Male

DRUGS (2)
  1. FORASEQ [Suspect]
     Indication: CHRONIC OBSTRUCTIVE PULMONARY DISEASE
     Dosage: 2 INHALATIONS OF EACH TREATMENT, DAILY
     Dates: start: 201205
  2. FORASEQ [Suspect]
     Dosage: 1 INHALATION OF EACH TREATMENT, DAILY

REACTIONS (3)
  - Cataract [Not Recovered/Not Resolved]
  - Device malfunction [Unknown]
  - Incorrect dose administered [Unknown]
